FAERS Safety Report 19898385 (Version 1)
Quarter: 2021Q3

REPORT INFORMATION
  Report Type: Spontaneous
  Country: US (occurrence: US)
  Receive Date: 20210929
  Receipt Date: 20210929
  Transmission Date: 20211014
  Serious: No
  Sender: FDA-Public Use
  Company Number: US-SAMSUNG BIOEPIS-SB-2020-28666

PATIENT
  Age: 70 Year
  Sex: Female

DRUGS (1)
  1. RENFLEXIS [Suspect]
     Active Substance: INFLIXIMAB-ABDA
     Indication: RHEUMATOID ARTHRITIS
     Route: 065

REACTIONS (3)
  - Ill-defined disorder [Unknown]
  - Tremor [Unknown]
  - Nasopharyngitis [Unknown]

NARRATIVE: CASE EVENT DATE: 20200902
